FAERS Safety Report 18472818 (Version 1)
Quarter: 2020Q4

REPORT INFORMATION
  Report Type: Spontaneous
  Country: US (occurrence: US)
  Receive Date: 20201104
  Receipt Date: 20201104
  Transmission Date: 20210114
  Serious: Yes (Hospitalization, Other)
  Sender: FDA-Public Use
  Company Number: None

PATIENT
  Age: 70 Year
  Sex: Male

DRUGS (17)
  1. METFORMIN [Concomitant]
     Active Substance: METFORMIN HYDROCHLORIDE
  2. TACROLIMUS, 0.5MG [Suspect]
     Active Substance: TACROLIMUS
     Indication: TRANSPLANT
     Route: 048
     Dates: start: 20200130, end: 20200420
  3. SMZ-TMP [Concomitant]
     Active Substance: SULFAMETHOXAZOLE\TRIMETHOPRIM
  4. ACYCLOVIR. [Concomitant]
     Active Substance: ACYCLOVIR
  5. JANUVIA [Concomitant]
     Active Substance: SITAGLIPTIN PHOSPHATE
  6. TACROLIMUS, 0.5MG [Suspect]
     Active Substance: TACROLIMUS
     Indication: ORGAN TRANSPLANT
     Route: 048
     Dates: start: 20200130, end: 20200420
  7. ATORVASTATIN [Concomitant]
     Active Substance: ATORVASTATIN
  8. AZITHROMYCIN ANHYDROUS. [Concomitant]
     Active Substance: AZITHROMYCIN ANHYDROUS
  9. PANTOPRAZOLE [Concomitant]
     Active Substance: PANTOPRAZOLE
  10. DILTIAZEM. [Concomitant]
     Active Substance: DILTIAZEM
  11. METOPROLOL. [Concomitant]
     Active Substance: METOPROLOL
  12. PREDNISONE. [Concomitant]
     Active Substance: PREDNISONE
  13. HUMULIN NOS [Concomitant]
     Active Substance: INSULIN HUMAN
  14. MONTELUKAST [Concomitant]
     Active Substance: MONTELUKAST SODIUM
  15. LISINOPRIL. [Concomitant]
     Active Substance: LISINOPRIL
  16. MYCOPHENOLAT [Concomitant]
     Active Substance: MYCOPHENOLATE MOFETIL
  17. TACROLIMUS. [Concomitant]
     Active Substance: TACROLIMUS

REACTIONS (1)
  - Hiatus hernia [None]

NARRATIVE: CASE EVENT DATE: 20201102
